FAERS Safety Report 6772345-1 (Version None)
Quarter: 2010Q2

REPORT INFORMATION
  Report Type: 
  Country: None (occurrence: None)
  Receive Date: 20100616
  Receipt Date: 20090917
  Transmission Date: 20101027
  Serious: No
  Sender: FDA-Public Use
  Company Number: US-ASTRAZENECA-2009SE13951

PATIENT
  Sex: Female
  Weight: 48.1 kg

DRUGS (4)
  1. PULMICORT FLEXHALER [Suspect]
     Route: 055
  2. ALBUTEROL SULFATE AUTOHALER [Concomitant]
  3. CHOLESTEROL [Concomitant]
  4. VITAMINS [Concomitant]

REACTIONS (2)
  - DIZZINESS [None]
  - TREMOR [None]
